FAERS Safety Report 12822627 (Version 2)
Quarter: 2017Q4

REPORT INFORMATION
  Report Type: Report from Study
  Country: US (occurrence: US)
  Receive Date: 20161006
  Receipt Date: 20171018
  Transmission Date: 20180320
  Serious: No
  Sender: FDA-Public Use
  Company Number: US-AMGEN-USASP2016120221

PATIENT
  Age: 84 Year
  Sex: Female

DRUGS (5)
  1. POTASSIUM [Concomitant]
     Active Substance: POTASSIUM
  2. VITAMINS [Concomitant]
     Active Substance: VITAMINS
  3. PROLIA [Suspect]
     Active Substance: DENOSUMAB
     Indication: BONE DISORDER
     Dosage: 60 MG, Q6MO
     Route: 065
     Dates: start: 2015
  4. GLUCOSAMINE [Concomitant]
     Active Substance: GLUCOSAMINE
     Indication: BONE DISORDER
     Dosage: 1500 MG, UNK(DIETARY SUPPLEMENT)
  5. GLUCOSAMINE [Concomitant]
     Active Substance: GLUCOSAMINE
     Indication: ARTHROPATHY

REACTIONS (9)
  - Arthritis [Unknown]
  - Pain in extremity [Unknown]
  - Dizziness [Unknown]
  - Foot deformity [Unknown]
  - Drug dose omission [Unknown]
  - Fall [Unknown]
  - Walking aid user [Unknown]
  - Hypoaesthesia [Unknown]
  - Balance disorder [Unknown]

NARRATIVE: CASE EVENT DATE: 2015
